FAERS Safety Report 14633500 (Version 1)
Quarter: 2018Q1

REPORT INFORMATION
  Report Type: Spontaneous
  Country: CN (occurrence: CN)
  Receive Date: 20180314
  Receipt Date: 20180314
  Transmission Date: 20180509
  Serious: Yes (Hospitalization)
  Sender: FDA-Public Use
  Company Number: CN-ROCHE-2083112

PATIENT
  Age: 32 Year
  Sex: Female
  Weight: 65 kg

DRUGS (3)
  1. VINORELBINE TARTRATE. [Suspect]
     Active Substance: VINORELBINE TARTRATE
     Indication: BREAST CANCER
     Route: 041
     Dates: start: 20171226, end: 20171226
  2. CARBOPLATIN. [Concomitant]
     Active Substance: CARBOPLATIN
  3. XELODA [Suspect]
     Active Substance: CAPECITABINE
     Indication: BREAST CANCER
     Route: 048
     Dates: start: 20171226, end: 20171229

REACTIONS (5)
  - Odynophagia [Recovering/Resolving]
  - Pain in jaw [Recovering/Resolving]
  - Tongue discolouration [Recovering/Resolving]
  - Glossodynia [Recovering/Resolving]
  - Mouth ulceration [Recovering/Resolving]

NARRATIVE: CASE EVENT DATE: 20171229
